FAERS Safety Report 6435386-X (Version None)
Quarter: 2009Q4

REPORT INFORMATION
  Report Type: 
  Country: None (occurrence: None)
  Receive Date: 20091110
  Receipt Date: 20091026
  Transmission Date: 20100525
  Serious: Yes (Other)
  Sender: FDA-Public Use
  Company Number: CA-GENENTECH-293302

PATIENT

DRUGS (1)
  1. BEVACIZUMAB [Suspect]
     Indication: COLORECTAL CANCER METASTATIC
     Route: 065

REACTIONS (7)
  - BILIARY TRACT DISORDER [None]
  - CARDIOMYOPATHY [None]
  - DISEASE PROGRESSION [None]
  - INFECTION [None]
  - MYOCARDIAL INFARCTION [None]
  - PANCYTOPENIA [None]
  - SEPSIS [None]
